FAERS Safety Report 6432755-9 (Version None)
Quarter: 2009Q4

REPORT INFORMATION
  Report Type: 
  Country: None (occurrence: None)
  Receive Date: 20091105
  Receipt Date: 20090811
  Transmission Date: 20100525
  Serious: Yes (Other)
  Sender: FDA-Public Use
  Company Number: 2009AP003241

PATIENT
  Age: 29 Year
  Sex: Male

DRUGS (3)
  1. VALPROATE SODIUM [Suspect]
     Indication: MOOD SWINGS
     Dosage: 500 MG, TAB, PO, TID
     Route: 048
     Dates: end: 20090809
  2. CHLORPROMAZINE [Concomitant]
  3. OLANZAPINE [Concomitant]

REACTIONS (12)
  - ABDOMINAL PAIN UPPER [None]
  - ASTHENIA [None]
  - COGNITIVE DISORDER [None]
  - CONFUSIONAL STATE [None]
  - COORDINATION ABNORMAL [None]
  - DISORIENTATION [None]
  - HYPOKINESIA [None]
  - MOOD ALTERED [None]
  - MUSCLE TWITCHING [None]
  - PSYCHOMOTOR SKILLS IMPAIRED [None]
  - TREMOR [None]
  - URINARY INCONTINENCE [None]
